FAERS Safety Report 21864080 (Version 6)
Quarter: 2023Q4

REPORT INFORMATION
  Report Type: Spontaneous
  Country: US (occurrence: US)
  Receive Date: 20230116
  Receipt Date: 20231116
  Transmission Date: 20240109
  Serious: No
  Sender: FDA-Public Use
  Company Number: US-GLAXOSMITHKLINE-US2023AMR004829

PATIENT
  Sex: Female

DRUGS (3)
  1. ZEJULA [Suspect]
     Active Substance: NIRAPARIB
     Indication: Fallopian tube cancer
     Dosage: 300 MG, QD
     Dates: end: 20230123
  2. ZEJULA [Suspect]
     Active Substance: NIRAPARIB
     Dosage: 200 MG, QD
     Dates: start: 202302
  3. ZEJULA [Suspect]
     Active Substance: NIRAPARIB
     Indication: Fallopian tube cancer
     Dosage: 200 MG, QD

REACTIONS (8)
  - Constipation [Recovering/Resolving]
  - Headache [Unknown]
  - Migraine [Unknown]
  - Nausea [Unknown]
  - Platelet count decreased [Recovered/Resolved]
  - Vomiting [Unknown]
  - Colonoscopy [Unknown]
  - Liver function test increased [Unknown]
